FAERS Safety Report 7404277-X (Version None)
Quarter: 2011Q2

REPORT INFORMATION
  Report Type: 
  Country: None (occurrence: None)
  Receive Date: 20110408
  Receipt Date: 20110327
  Transmission Date: 20111010
  Serious: Yes (Hospitalization)
  Sender: FDA-Public Use
  Company Number: AE-CELGENEUS-166-21880-11033097

PATIENT
  Sex: Male
  Weight: 76 kg

DRUGS (7)
  1. FUROSEMIDE [Concomitant]
     Dosage: 80
     Route: 048
  2. REVLIMID [Suspect]
     Indication: MULTIPLE MYELOMA
     Dosage: 10 MILLIGRAM
     Route: 048
     Dates: start: 20101212
  3. INSULIN GLARGINE [Concomitant]
     Dosage: 840
     Route: 058
  4. AMLODIPINE [Concomitant]
     Dosage: 5 MILLIGRAM
     Route: 048
  5. ASPIRIN [Concomitant]
     Dosage: 100 MILLIGRAM
     Route: 048
  6. ATORVASTATIN CALCIUM [Concomitant]
     Dosage: 480 MILLIGRAM
     Route: 048
  7. INSULIN LISPRO [Concomitant]
     Dosage: 14
     Route: 058

REACTIONS (3)
  - FATIGUE [None]
  - DYSPNOEA [None]
  - SKIN DISCOLOURATION [None]
